FAERS Safety Report 13220452 (Version 2)
Quarter: 2020Q3

REPORT INFORMATION
  Report Type: Spontaneous
  Country: US (occurrence: US)
  Receive Date: 20170210
  Receipt Date: 20170801
  Transmission Date: 20201104
  Serious: Yes (Life-Threatening, Other)
  Sender: FDA-Public Use
  Company Number: US-JNJFOC-20160210802

PATIENT

DRUGS (5)
  1. CYCLOPHOSPHAMIDE. [Suspect]
     Active Substance: CYCLOPHOSPHAMIDE
     Indication: DIFFUSE LARGE B-CELL LYMPHOMA
     Dosage: FOR A TOTAL OF 6 OR 8 CYCLES
     Route: 065
  2. POLATUZUMAB VEDOTIN. [Suspect]
     Active Substance: POLATUZUMAB VEDOTIN
     Indication: DIFFUSE LARGE B-CELL LYMPHOMA
     Dosage: 1.0, 1.4 OR 1.8 MG/KG FOR A TOTAL OF 6 OR 8 CYCLES
     Route: 042
  3. DOXORUBICIN HYDROCHLORIDE. [Suspect]
     Active Substance: DOXORUBICIN HYDROCHLORIDE
     Indication: DIFFUSE LARGE B-CELL LYMPHOMA
     Dosage: FOR A TOTAL OF 6 OR 8 CYCLES
     Route: 065
  4. RITUXIMAB. [Suspect]
     Active Substance: RITUXIMAB
     Indication: DIFFUSE LARGE B-CELL LYMPHOMA
     Dosage: FOR A TOTAL OF 6 OR 8 CYCLES
     Route: 065
  5. PREDNISONE. [Suspect]
     Active Substance: PREDNISONE
     Indication: DIFFUSE LARGE B-CELL LYMPHOMA
     Dosage: FOR A TOTAL OF 6 OR 8 CYCLES
     Route: 065

REACTIONS (33)
  - Febrile neutropenia [Unknown]
  - Leukopenia [Unknown]
  - Malnutrition [Unknown]
  - Back pain [Unknown]
  - Fatigue [Unknown]
  - Vomiting [Unknown]
  - Insomnia [Unknown]
  - Dizziness [Unknown]
  - Femur fracture [Unknown]
  - Rheumatoid arthritis [Unknown]
  - Neutropenia [Unknown]
  - Motor dysfunction [Unknown]
  - Dysphagia [Unknown]
  - Pneumonia [Unknown]
  - Pyrexia [Unknown]
  - Chylothorax [Unknown]
  - Ophthalmic herpes zoster [Unknown]
  - Escherichia urinary tract infection [Unknown]
  - Paraesthesia [Unknown]
  - Pulmonary embolism [Unknown]
  - Thrombocytopenia [Unknown]
  - Hyponatraemia [Unknown]
  - Confusional state [Unknown]
  - Asthenia [Unknown]
  - Nausea [Unknown]
  - Deep vein thrombosis [Unknown]
  - Decreased appetite [Unknown]
  - Hypertension [Unknown]
  - Oral fungal infection [Unknown]
  - Muscular weakness [Unknown]
  - Neuralgia [Unknown]
  - Neuropathy peripheral [Unknown]
  - Diarrhoea [Unknown]
